FAERS Safety Report 8834930 (Version 1)
Quarter: 2012Q4

REPORT INFORMATION
  Report Type: 
  Country: US (occurrence: US)
  Receive Date: 20121011
  Receipt Date: 20121011
  Transmission Date: 20130627
  Serious: No
  Sender: FDA-Public Use
  Company Number: US-BIOGENIDEC-2012BI042269

PATIENT
  Sex: Female

DRUGS (1)
  1. TYSABRI [Suspect]
     Indication: MULTIPLE SCLEROSIS
     Route: 042
     Dates: start: 20100408, end: 20120604

REACTIONS (4)
  - Oedema peripheral [Unknown]
  - Hypoacusis [Not Recovered/Not Resolved]
  - Ill-defined disorder [Unknown]
  - Adverse drug reaction [Recovered/Resolved]
